FAERS Safety Report 12218282 (Version 2)
Quarter: 2016Q2

REPORT INFORMATION
  Report Type: Spontaneous
  Country: FR (occurrence: FR)
  Receive Date: 20160329
  Receipt Date: 20160524
  Transmission Date: 20160815
  Serious: Yes (Hospitalization)
  Sender: FDA-Public Use
  Company Number: FR-TEVA-645949ISR

PATIENT
  Age: 57 Year
  Sex: Female

DRUGS (12)
  1. LYRICA 300 MG [Concomitant]
     Indication: PAIN
     Dosage: 600 MILLIGRAM DAILY;
     Route: 048
  2. CORTANCYL 5 MG [Concomitant]
     Indication: SJOGREN^S SYNDROME
     Dosage: 1 DOSAGE FORMS DAILY;
     Route: 048
  3. PECFENT [Concomitant]
     Active Substance: FENTANYL CITRATE
     Indication: PAIN
     Dosage: 1 DOSAGE FORMS DAILY;
     Route: 045
  4. BURINEX 5 MG [Suspect]
     Active Substance: BUMETANIDE
     Indication: CARDIAC FAILURE
     Dosage: 1 DOSAGE FORMS DAILY;
     Route: 048
     Dates: end: 20151217
  5. PLAQUENIL [Concomitant]
     Active Substance: HYDROXYCHLOROQUINE SULFATE
     Indication: SJOGREN^S SYNDROME
     Dosage: 400 MILLIGRAM DAILY;
     Route: 048
  6. ZOPICLONE [Concomitant]
     Active Substance: ZOPICLONE
     Indication: INSOMNIA
     Dosage: 7.5 MILLIGRAM DAILY;
     Route: 048
  7. LACRIGEL [Concomitant]
     Active Substance: CARBOMER
     Indication: DRY EYE
     Dosage: 3 DOSAGE FORMS DAILY; FORM: OPHTALMIC GEL
     Route: 047
  8. VENTOLINE [Concomitant]
     Active Substance: ALBUTEROL
     Indication: ASTHMA
     Route: 055
  9. ANTADYS 100 MG [Suspect]
     Active Substance: FLURBIPROFEN
     Indication: PAIN
     Dosage: 2 DOSAGE FORMS DAILY;
     Route: 048
     Dates: end: 20151217
  10. ATHYMIL 10 MG [Concomitant]
     Indication: DEPRESSION
     Dosage: 10 MILLIGRAM DAILY;
     Route: 048
  11. PINAVERIUM (BROMURE DE) [Concomitant]
     Indication: MUSCLE SPASMS
     Dosage: 200 MILLIGRAM DAILY;
     Route: 048
  12. VERSATIS 5% [Concomitant]
     Indication: PAIN
     Dosage: FORM: MEDICINAL PLASTER
     Route: 003

REACTIONS (2)
  - Renal failure [Recovered/Resolved]
  - Hypokalaemia [Recovered/Resolved]

NARRATIVE: CASE EVENT DATE: 201512
